FAERS Safety Report 8328166-1 (Version None)
Quarter: 2012Q2

REPORT INFORMATION
  Report Type: 
  Country: None (occurrence: None)
  Receive Date: 20120502
  Receipt Date: 20120427
  Transmission Date: 20120825
  Serious: Yes (Death)
  Sender: FDA-Public Use
  Company Number: PHEH2012US004148

PATIENT
  Sex: Male

DRUGS (2)
  1. NEXAVAR [Concomitant]
     Indication: HEPATIC NEOPLASM MALIGNANT
     Dosage: 400 MG, BID
     Route: 048
  2. ZOMETA [Suspect]
     Indication: METASTASES TO BONE
     Dosage: 4 MG/ML, QMO
     Route: 042

REACTIONS (5)
  - HEPATIC CANCER METASTATIC [None]
  - MALAISE [None]
  - TERMINAL STATE [None]
  - ASTHENIA [None]
  - PAIN [None]
